FAERS Safety Report 8611423-9 (Version None)
Quarter: 2012Q3

REPORT INFORMATION
  Report Type: 
  Country: None (occurrence: None)
  Receive Date: 20120822
  Receipt Date: 20120810
  Transmission Date: 20120928
  Serious: Yes (Other)
  Sender: FDA-Public Use
  Company Number: GB-GILEAD-2012-0057240

PATIENT
  Sex: Male

DRUGS (9)
  1. RANOLAZINE [Suspect]
     Dosage: 500 MG, BID
     Route: 048
  2. RANOLAZINE [Suspect]
     Dosage: 500 MG, QD
  3. ATENOLOL [Concomitant]
     Dosage: 100 MG, QD
  4. RANOLAZINE [Suspect]
     Indication: ANGINA PECTORIS
     Dosage: 375 MG, BID
     Route: 048
     Dates: start: 20110310
  5. HYDRALAZINE HCL [Concomitant]
     Dosage: 100 MG, QD
  6. FRUSEMIDE                          /00032601/ [Concomitant]
     Dosage: 40 MG, QD
  7. AMLODIPINE [Concomitant]
     Dosage: 10 MG, QD
  8. ALPHACALCIDOL [Concomitant]
     Dosage: 0.25 ?G, QD
  9. ASPIRIN [Concomitant]
     Dosage: 75 MG, QD

REACTIONS (2)
  - RENAL IMPAIRMENT [None]
  - MALAISE [None]
